FAERS Safety Report 17338732 (Version 1)
Quarter: 2020Q1

REPORT INFORMATION
  Report Type: Spontaneous
  Country: US (occurrence: US)
  Receive Date: 20200113
  Receipt Date: 20200113
  Transmission Date: 20200409
  Serious: Yes (Hospitalization)
  Sender: FDA-Public Use
  Company Number: None

PATIENT
  Age: 80 Year
  Sex: Male
  Weight: 188.24 kg

DRUGS (1)
  1. JARDIANCE [Suspect]
     Active Substance: EMPAGLIFLOZIN
     Indication: CELLULITIS OF MALE EXTERNAL GENITAL ORGAN
     Route: 054
     Dates: start: 20190401, end: 20200113

REACTIONS (1)
  - Scrotal abscess [None]

NARRATIVE: CASE EVENT DATE: 20191204
